FAERS Safety Report 9441255 (Version 1)
Quarter: 2013Q3

REPORT INFORMATION
  Report Type: Spontaneous
  Country: FR (occurrence: FR)
  Receive Date: 20130805
  Receipt Date: 20130805
  Transmission Date: 20140515
  Serious: Yes (Death, Hospitalization)
  Sender: FDA-Public Use
  Company Number: FR-B.I. PHARMACEUTICALS,INC./RIDGEFIELD-2013-FF-00583FF

PATIENT
  Age: 75 Year
  Sex: Male

DRUGS (10)
  1. PRADAXA [Suspect]
     Indication: ATRIAL FIBRILLATION
     Dosage: 220 MG
     Route: 048
     Dates: start: 201212, end: 201302
  2. MICARDIS [Concomitant]
     Route: 048
  3. NEBIVOLOL [Concomitant]
  4. CORDARONE [Concomitant]
  5. LASILIX [Concomitant]
     Dates: end: 201212
  6. ALLOPURINOL [Concomitant]
  7. DIAMICRON [Concomitant]
  8. XATRAL [Concomitant]
  9. INEXIUM [Concomitant]
  10. XANAX [Concomitant]

REACTIONS (8)
  - Cerebrovascular accident [Fatal]
  - Hemiplegia [Unknown]
  - Lung disorder [Unknown]
  - Small intestinal haemorrhage [Recovered/Resolved]
  - Benign duodenal neoplasm [Unknown]
  - Lung infection [Unknown]
  - Anaemia [Unknown]
  - Cerebral disorder [Unknown]
